FAERS Safety Report 20640894 (Version 1)
Quarter: 2022Q1

REPORT INFORMATION
  Report Type: Spontaneous
  Country: BG (occurrence: BG)
  Receive Date: 20220327
  Receipt Date: 20220327
  Transmission Date: 20220423
  Serious: Yes (Other)
  Sender: FDA-Public Use
  Company Number: BG-AMGEN-BGRSP2022051916

PATIENT
  Age: 61 Year
  Sex: Male

DRUGS (6)
  1. XGEVA [Suspect]
     Active Substance: DENOSUMAB
     Indication: Prostate cancer metastatic
     Dosage: 120 MILLIGRAM
     Route: 065
     Dates: start: 202005
  2. DOCETAXEL [Concomitant]
     Active Substance: DOCETAXEL
     Indication: Prostate cancer metastatic
     Dosage: 75 MICROGRAM/SQ. METER
     Dates: start: 202005
  3. LEUPROLIDE ACETATE [Concomitant]
     Active Substance: LEUPROLIDE ACETATE
     Indication: Prostate cancer metastatic
     Dosage: 45 MILLIGRAM
     Dates: start: 202005
  4. FENTANYL [Concomitant]
     Active Substance: FENTANYL
     Indication: Prostate cancer metastatic
     Dosage: 50 MILLIGRAM
     Dates: start: 202005
  5. ABIRATERONE [Concomitant]
     Active Substance: ABIRATERONE
     Indication: Hormone-refractory prostate cancer
     Dosage: 1000 MILLIGRAM
  6. PREDNISOLONE [Concomitant]
     Active Substance: PREDNISOLONE
     Indication: Hormone-refractory prostate cancer
     Dosage: 5 MILLIGRAMX 2

REACTIONS (2)
  - Hormone-refractory prostate cancer [Recovered/Resolved]
  - Therapy partial responder [Unknown]

NARRATIVE: CASE EVENT DATE: 20210301
